FAERS Safety Report 20568678 (Version 1)
Quarter: 2022Q1

REPORT INFORMATION
  Report Type: Spontaneous
  Country: TR (occurrence: TR)
  Receive Date: 20220308
  Receipt Date: 20220308
  Transmission Date: 20220423
  Serious: No
  Sender: FDA-Public Use
  Company Number: TR-ELI_LILLY_AND_COMPANY-TR202203000925

PATIENT
  Sex: Male

DRUGS (1)
  1. CIALIS [Suspect]
     Active Substance: TADALAFIL
     Indication: Product used for unknown indication
     Dosage: 100 MG, UNKNOWN
     Route: 065

REACTIONS (12)
  - Somnolence [Unknown]
  - Dysuria [Unknown]
  - Erythema [Unknown]
  - Eye irritation [Unknown]
  - Headache [Unknown]
  - Asthenia [Unknown]
  - Fatigue [Unknown]
  - Ocular hyperaemia [Unknown]
  - Hyperhidrosis [Unknown]
  - Eye pain [Unknown]
  - Counterfeit product administered [Unknown]
  - Intentional product misuse [Unknown]
